FAERS Safety Report 22160600 (Version 1)
Quarter: 2023Q1

REPORT INFORMATION
  Report Type: Spontaneous
  Country: US (occurrence: None)
  Receive Date: 20230329
  Receipt Date: 20230329
  Transmission Date: 20230417
  Serious: Yes (Life-Threatening, Other)
  Sender: FDA-Public Use
  Company Number: None

PATIENT
  Age: 33 Year
  Sex: Female
  Weight: 71.67 kg

DRUGS (3)
  1. MIRENA [Suspect]
     Active Substance: LEVONORGESTREL
     Dates: start: 20190501, end: 20230328
  2. NUVIGIL [Concomitant]
     Active Substance: ARMODAFINIL
  3. Ashwaghanda [Concomitant]

REACTIONS (4)
  - Feeling abnormal [None]
  - Vaginal discharge [None]
  - Ectopic pregnancy [None]
  - Exposure during pregnancy [None]

NARRATIVE: CASE EVENT DATE: 20230328
